FAERS Safety Report 17756514 (Version 1)
Quarter: 2020Q2

REPORT INFORMATION
  Report Type: Spontaneous
  Country: US (occurrence: US)
  Receive Date: 20200507
  Receipt Date: 20200507
  Transmission Date: 20200714
  Serious: Yes (Life-Threatening, Hospitalization, Other)
  Sender: FDA-Public Use
  Company Number: US-STRIDES ARCOLAB LIMITED-2020SP005443

PATIENT
  Sex: Female

DRUGS (4)
  1. MYCOPHENOLATE MOFETIL. [Suspect]
     Active Substance: MYCOPHENOLATE MOFETIL
     Indication: RENAL TRANSPLANT
     Dosage: UNK
     Route: 065
     Dates: start: 2004
  2. METHYLPREDNISOLONE. [Concomitant]
     Active Substance: METHYLPREDNISOLONE
     Indication: RENAL TRANSPLANT
     Dosage: UNK
     Route: 065
  3. SIROLIMUS. [Suspect]
     Active Substance: SIROLIMUS
     Indication: RENAL TRANSPLANT
     Dosage: UNK
     Route: 065
     Dates: start: 2004
  4. PREDNISOLONE. [Suspect]
     Active Substance: PREDNISOLONE
     Indication: RENAL TRANSPLANT
     Dosage: UNK
     Route: 065
     Dates: start: 2004

REACTIONS (32)
  - Lung consolidation [Unknown]
  - Acute kidney injury [Unknown]
  - Tachypnoea [Unknown]
  - Confusional state [Unknown]
  - Pulmonary mass [Unknown]
  - Tracheal oedema [Unknown]
  - Cough [Unknown]
  - Dyspnoea [Unknown]
  - Wheezing [Unknown]
  - Myalgia [Unknown]
  - Bronchial secretion retention [Unknown]
  - Mouth ulceration [Unknown]
  - Q fever [Not Recovered/Not Resolved]
  - Tracheal erythema [Unknown]
  - Herpes simplex [Unknown]
  - Fatigue [Unknown]
  - Chills [Unknown]
  - Renal graft infection [Unknown]
  - Hypoxia [Unknown]
  - Endocarditis Q fever [Unknown]
  - Oesophagitis [Unknown]
  - Pyrexia [Unknown]
  - Headache [Unknown]
  - Aortic arteriosclerosis [Unknown]
  - Clostridium difficile infection [Unknown]
  - Rales [Unknown]
  - Malaise [Unknown]
  - Nausea [Unknown]
  - Post-tussive vomiting [Unknown]
  - Acute respiratory distress syndrome [Unknown]
  - Vomiting [Unknown]
  - Aortic valve incompetence [Unknown]
